FAERS Safety Report 5323066-3 (Version None)
Quarter: 2007Q2

REPORT INFORMATION
  Report Type: 
  Country: None (occurrence: None)
  Receive Date: 20070507
  Receipt Date: 20070420
  Transmission Date: 20071010
  Serious: Yes (Congenital Anomaly)
  Sender: FDA-Public Use
  Company Number: 8020483

PATIENT
  Age: 8 Month
  Sex: Male
  Weight: 7.22 kg

DRUGS (6)
  1. KEPPRA [Suspect]
     Indication: EPILEPSY
     Dosage: 2000 MG TRP
  2. ZELNORM [Concomitant]
  3. PROZAC [Concomitant]
  4. TERBUTALINE SULFATE [Concomitant]
  5. NIFEDIPINE [Concomitant]
  6. ZOFRAN [Concomitant]

REACTIONS (4)
  - DRUG EXPOSURE DURING PREGNANCY [None]
  - DRUG EXPOSURE VIA BREAST MILK [None]
  - ENAMEL ANOMALY [None]
  - PREMATURE BABY [None]
